FAERS Safety Report 22245682 (Version 1)
Quarter: 2023Q2

REPORT INFORMATION
  Report Type: Spontaneous
  Country: JP (occurrence: JP)
  Receive Date: 20230424
  Receipt Date: 20230424
  Transmission Date: 20230721
  Serious: Yes (Other)
  Sender: FDA-Public Use
  Company Number: JP-Merck Healthcare KGaA-9395620

PATIENT
  Age: 76 Year
  Sex: Male

DRUGS (4)
  1. ERBITUX [Suspect]
     Active Substance: CETUXIMAB
     Indication: Neuroendocrine carcinoma metastatic
     Dosage: 400 MG/M2, WEEKLY (1/W)
     Route: 041
  2. ERBITUX [Suspect]
     Active Substance: CETUXIMAB
     Dosage: 250 MG/M2
     Route: 041
  3. ENCORAFENIB [Suspect]
     Active Substance: ENCORAFENIB
     Indication: Neuroendocrine carcinoma metastatic
     Dosage: 300 MG, UNK
     Route: 048
  4. BINIMETINIB [Suspect]
     Active Substance: BINIMETINIB
     Indication: Neuroendocrine carcinoma metastatic
     Dosage: UNK, DAILY
     Route: 048

REACTIONS (2)
  - Visual impairment [Unknown]
  - Off label use [Unknown]
